FAERS Safety Report 9836723 (Version 2)
Quarter: 2014Q1

REPORT INFORMATION
  Report Type: Spontaneous
  Country: FR (occurrence: FR)
  Receive Date: 20140123
  Receipt Date: 20140312
  Transmission Date: 20141002
  Serious: Yes (Hospitalization)
  Sender: FDA-Public Use
  Company Number: PHHY2014FR006159

PATIENT
  Age: 21 Year
  Sex: Female

DRUGS (3)
  1. VOTUBIA [Suspect]
     Indication: TUBEROUS SCLEROSIS
     Dosage: UNK
     Route: 048
     Dates: start: 201308, end: 201310
  2. KEPPRA [Concomitant]
     Indication: EPILEPSY
     Dosage: 2000 MG, QD
     Route: 048
  3. URBANYL [Concomitant]
     Indication: EPILEPSY
     Dosage: 10 MG, QD
     Route: 048

REACTIONS (4)
  - Pneumothorax [Recovered/Resolved]
  - Chest pain [Unknown]
  - Cough [Unknown]
  - Gastrointestinal disorder [Unknown]
